FAERS Safety Report 6204584-2 (Version None)
Quarter: 2009Q2

REPORT INFORMATION
  Report Type: 
  Country: None (occurrence: None)
  Receive Date: 20090527
  Receipt Date: 20090508
  Transmission Date: 20091009
  Serious: Yes (Hospitalization)
  Sender: FDA-Public Use
  Company Number: US-JNJFOC-20090502243

PATIENT
  Sex: Male

DRUGS (3)
  1. HALOPERIDOL DECANOATE [Suspect]
     Indication: SCHIZOPHRENIA
     Route: 065
  2. RISPERIDONE [Suspect]
     Indication: SCHIZOPHRENIA
     Route: 030
  3. DIVALPROEX SODIUM [Suspect]
     Indication: SCHIZOPHRENIA
     Route: 065

REACTIONS (4)
  - DEPRESSION [None]
  - ERECTILE DYSFUNCTION [None]
  - PARKINSONISM [None]
  - TARDIVE DYSKINESIA [None]
